FAERS Safety Report 19578904 (Version 2)
Quarter: 2021Q3

REPORT INFORMATION
  Report Type: Report from Study
  Country: US (occurrence: US)
  Receive Date: 20210719
  Receipt Date: 20210816
  Transmission Date: 20211014
  Serious: No
  Sender: FDA-Public Use
  Company Number: NVSC2021US154537

PATIENT
  Age: 36 Year
  Sex: Male

DRUGS (1)
  1. ENTRESTO [Suspect]
     Active Substance: SACUBITRIL\VALSARTAN
     Indication: PRODUCT USED FOR UNKNOWN INDICATION
     Dosage: UNK UNK, BID
     Route: 048

REACTIONS (7)
  - Emotional distress [Unknown]
  - Hypersensitivity [Unknown]
  - Cough [Unknown]
  - Throat clearing [Unknown]
  - Decreased appetite [Unknown]
  - Sleep apnoea syndrome [Unknown]
  - Weight decreased [Unknown]
